FAERS Safety Report 6638195-1 (Version None)
Quarter: 2010Q1

REPORT INFORMATION
  Report Type: 
  Country: None (occurrence: None)
  Receive Date: 20100317
  Receipt Date: 20100308
  Transmission Date: 20100710
  Serious: Yes (Hospitalization)
  Sender: FDA-Public Use
  Company Number: FR-ROCHE-56459

PATIENT
  Age: 42 Year
  Sex: Female
  Weight: 122 kg

DRUGS (2)
  1. AMITRIPTYLINE HCL [Suspect]
     Indication: DRUG USE FOR UNKNOWN INDICATION
     Route: 048
  2. AMISULPRIDE [Suspect]
     Indication: SCHIZOPHRENIA
     Route: 048

REACTIONS (1)
  - CONGESTIVE CARDIOMYOPATHY [None]
